FAERS Safety Report 18534483 (Version 1)
Quarter: 2020Q4

REPORT INFORMATION
  Report Type: Spontaneous
  Country: US (occurrence: US)
  Receive Date: 20201123
  Receipt Date: 20201123
  Transmission Date: 20210114
  Serious: Yes (Other)
  Sender: FDA-Public Use
  Company Number: US-TEVA-2020-US-1850611

PATIENT
  Sex: Female

DRUGS (1)
  1. ALBUTEROL SULFATE HFA TEVA [Suspect]
     Active Substance: ALBUTEROL SULFATE
     Route: 065

REACTIONS (5)
  - Drug hypersensitivity [Unknown]
  - Systemic lupus erythematosus [Unknown]
  - Throat irritation [Unknown]
  - Palatal swelling [Unknown]
  - Oral discomfort [Unknown]
